FAERS Safety Report 10422698 (Version 2)
Quarter: 2020Q3

REPORT INFORMATION
  Report Type: Spontaneous
  Country: US (occurrence: US)
  Receive Date: 20140902
  Receipt Date: 20200730
  Transmission Date: 20201102
  Serious: Yes (Other)
  Sender: FDA-Public Use
  Company Number: US-AUROBINDO-AUR-APL-2014-09226

PATIENT
  Age: 48 Year
  Sex: Female
  Weight: 92.6 kg

DRUGS (2)
  1. CYCLOBENZAPRINE. [Suspect]
     Active Substance: CYCLOBENZAPRINE
     Indication: PAIN
     Dosage: 10 MG, 3 TIMES A DAY
     Route: 065
  2. NAPROXEN. [Concomitant]
     Active Substance: NAPROXEN
     Indication: PAIN
     Dosage: 500 MILLIGRAM, TWO TIMES A DAY
     Route: 065

REACTIONS (2)
  - Balance disorder [Unknown]
  - Constipation [Unknown]
